FAERS Safety Report 21719272 (Version 4)
Quarter: 2023Q1

REPORT INFORMATION
  Report Type: Report from Study
  Country: US (occurrence: US)
  Receive Date: 20221213
  Receipt Date: 20230309
  Transmission Date: 20230417
  Serious: Yes (Death, Hospitalization, Other)
  Sender: FDA-Public Use
  Company Number: US-002147023-NVSC2022US284508

PATIENT
  Sex: Male

DRUGS (3)
  1. TABRECTA [Suspect]
     Active Substance: CAPMATINIB
     Indication: Product used for unknown indication
     Dosage: 200 MG, BID
     Route: 048
     Dates: start: 20221111
  2. TABRECTA [Suspect]
     Active Substance: CAPMATINIB
     Dosage: 200 MG, BID
     Route: 048
  3. TABRECTA [Suspect]
     Active Substance: CAPMATINIB
     Dosage: UNK
     Route: 048

REACTIONS (9)
  - Death [Fatal]
  - Atrial fibrillation [Unknown]
  - Hypotension [Unknown]
  - Loss of consciousness [Unknown]
  - Neoplasm malignant [Unknown]
  - Panic attack [Unknown]
  - Nightmare [Unknown]
  - Insomnia [Unknown]
  - Product availability issue [Unknown]
